FAERS Safety Report 9543903 (Version 1)
Quarter: 2013Q3

REPORT INFORMATION
  Report Type: Spontaneous
  Country: US (occurrence: US)
  Receive Date: 20130923
  Receipt Date: 20130923
  Transmission Date: 20140515
  Serious: Yes (Other)
  Sender: FDA-Public Use
  Company Number: US-PFIZER INC-2013268809

PATIENT
  Age: 52 Year
  Sex: Female
  Weight: 90.7 kg

DRUGS (7)
  1. XANAX [Suspect]
     Indication: ANXIETY
     Dosage: 0.25 MG, 3X/DAY
     Route: 048
  2. CYMBALTA [Concomitant]
     Dosage: UNK
  3. AMBIEN CR [Concomitant]
     Dosage: UNK
  4. LYRICA [Concomitant]
     Dosage: UNK
  5. PRINIVIL [Concomitant]
     Indication: HYPERTENSION
     Dosage: UNK
  6. HYDROCODONE [Concomitant]
     Dosage: UNK
  7. VICODIN [Concomitant]
     Dosage: UNK

REACTIONS (1)
  - Diabetes mellitus [Not Recovered/Not Resolved]
